FAERS Safety Report 13194623 (Version 1)
Quarter: 2017Q1

REPORT INFORMATION
  Report Type: Spontaneous
  Country: FR (occurrence: FR)
  Receive Date: 20170207
  Receipt Date: 20170207
  Transmission Date: 20170428
  Serious: No
  Sender: FDA-Public Use
  Company Number: FR-JAZZ-2016-FR-008677

PATIENT
  Age: 46 Year
  Sex: Female
  Weight: 99 kg

DRUGS (3)
  1. NAROPEINE [Suspect]
     Active Substance: ROPIVACAINE HYDROCHLORIDE
     Indication: PAIN
     Dosage: 16 MG, UNK
     Route: 037
  2. PRIALT [Suspect]
     Active Substance: ZICONOTIDE ACETATE
     Indication: PAIN
     Dosage: 1.1 ?G, UNK
     Route: 037
     Dates: start: 20151118, end: 20160322
  3. MORPHINE [Suspect]
     Active Substance: MORPHINE
     Indication: PAIN
     Dosage: 3 MG, UNK
     Route: 037

REACTIONS (3)
  - Hallucination, visual [Recovering/Resolving]
  - Aggression [Recovering/Resolving]
  - Mental disorder [Unknown]

NARRATIVE: CASE EVENT DATE: 20160322
